FAERS Safety Report 9691313 (Version 1)
Quarter: 2013Q4

REPORT INFORMATION
  Report Type: Spontaneous
  Country: US (occurrence: US)
  Receive Date: 20131115
  Receipt Date: 20131115
  Transmission Date: 20140711
  Serious: No
  Sender: FDA-Public Use
  Company Number: US-TEVA-444567USA

PATIENT
  Age: 63 Year
  Sex: Female
  Weight: 74.91 kg

DRUGS (16)
  1. COPAXONE [Suspect]
     Indication: MULTIPLE SCLEROSIS
  2. TIZANIDINE [Concomitant]
  3. PRIMIDONE [Concomitant]
  4. TRICOR [Concomitant]
     Indication: BLOOD CHOLESTEROL INCREASED
  5. METFORMIN [Concomitant]
     Indication: DIABETES MELLITUS
  6. SIMVASTATIN [Concomitant]
  7. FUROSEMIDE [Concomitant]
  8. HYDROXYZINE [Concomitant]
     Indication: PRURITUS
  9. TRIAMCINOLONE ACETONIDE [Concomitant]
  10. CLOTRIMAZOLE [Concomitant]
  11. BETAMETHASONE [Concomitant]
  12. PERMETHRIN [Concomitant]
  13. ASPIRIN [Concomitant]
  14. GLIMEPIRIDE [Concomitant]
     Indication: DIABETES MELLITUS
  15. CALCIUM [Concomitant]
  16. CLINDAMYCIN [Concomitant]
     Indication: PRURITUS

REACTIONS (9)
  - Dyspnoea [Recovered/Resolved]
  - Feeling abnormal [Recovered/Resolved]
  - Arthropathy [Recovered/Resolved]
  - Arthralgia [Unknown]
  - Pain in extremity [Unknown]
  - Chills [Unknown]
  - Dyskinesia [Unknown]
  - Trismus [Unknown]
  - Dyskinesia [Unknown]
